FAERS Safety Report 4812079-3 (Version None)
Quarter: 2005Q4

REPORT INFORMATION
  Report Type: 
  Country: None (occurrence: None)
  Receive Date: 20051026
  Receipt Date: 20051012
  Transmission Date: 20060501
  Serious: Yes (Hospitalization)
  Sender: FDA-Public Use
  Company Number: USA0507104132

PATIENT
  Age: 54 Year
  Sex: Female

DRUGS (1)
  1. CYMBALTA [Suspect]
     Indication: DEPRESSION
     Dosage: 30 MG DAY
     Dates: start: 20050408, end: 20050418

REACTIONS (8)
  - ANGER [None]
  - CRYING [None]
  - DISTURBANCE IN ATTENTION [None]
  - INSOMNIA [None]
  - MEMORY IMPAIRMENT [None]
  - PSYCHOTIC DISORDER [None]
  - SOMNOLENCE [None]
  - SUICIDAL IDEATION [None]
